FAERS Safety Report 7344803-2 (Version None)
Quarter: 2011Q1

REPORT INFORMATION
  Report Type: 
  Country: None (occurrence: None)
  Receive Date: 20110310
  Receipt Date: 20110303
  Transmission Date: 20110831
  Serious: Yes (Hospitalization)
  Sender: FDA-Public Use
  Company Number: JP-CEPHALON-2010006593

PATIENT
  Age: 77 Year
  Sex: Female

DRUGS (8)
  1. PREDNISOLONE [Concomitant]
  2. NAPROXEN [Concomitant]
     Dates: start: 20110108, end: 20110125
  3. MEROPENEM [Concomitant]
     Dates: start: 20101223, end: 20110111
  4. BENDAMUSTINE HCL [Suspect]
     Indication: MANTLE CELL LYMPHOMA
     Route: 042
     Dates: start: 20101214, end: 20101215
  5. GRANISETRON HYDROCHLORIDE [Concomitant]
  6. FLUCONAZOLE [Concomitant]
  7. SULFAMETHOXAZOLE AND TRIMETHOPRIM [Concomitant]
     Dates: start: 20101214
  8. CEFEPIME HYDROCHLORIDE [Concomitant]

REACTIONS (4)
  - PYREXIA [None]
  - COUGH [None]
  - BONE MARROW FAILURE [None]
  - STOMATITIS [None]
